FAERS Safety Report 9868485 (Version 3)
Quarter: 2014Q2

REPORT INFORMATION
  Report Type: Spontaneous
  Country: FR (occurrence: FR)
  Receive Date: 20140204
  Receipt Date: 20140618
  Transmission Date: 20141212
  Serious: Yes (Life-Threatening, Hospitalization)
  Sender: FDA-Public Use
  Company Number: FR-PFIZER INC-2014030653

PATIENT
  Age: 65 Year
  Sex: Male
  Weight: 60 kg

DRUGS (11)
  1. EUPANTOL [Suspect]
     Dosage: UNK
     Route: 048
     Dates: start: 20140109, end: 20140116
  2. ZYTIGA [Suspect]
     Dosage: 500 MG, DAILY
     Route: 048
     Dates: start: 20131219, end: 20140113
  3. DAFALGAN [Suspect]
     Dosage: UNK
     Route: 065
  4. OXYNORMORO [Concomitant]
     Dosage: UNK
  5. OXYCONTIN [Concomitant]
     Dosage: UNK
  6. PREDNISONE [Concomitant]
     Dosage: UNK
  7. DOMPERIDONE [Concomitant]
     Dosage: UNK
  8. CALCIT D3 [Concomitant]
     Dosage: UNK
  9. MOVICOL [Concomitant]
     Dosage: UNK
  10. INEXIUM [Concomitant]
     Dosage: UNK
     Dates: start: 20140109, end: 20140109
  11. HEPARIN-FRACTION [Concomitant]

REACTIONS (6)
  - Thrombocytopenia [Recovered/Resolved]
  - Epistaxis [Recovered/Resolved]
  - Purpura [Unknown]
  - Haematuria [Recovered/Resolved]
  - Rectal haemorrhage [Recovered/Resolved]
  - Disseminated intravascular coagulation [Recovered/Resolved]
